FAERS Safety Report 10722248 (Version 1)
Quarter: 2015Q1

REPORT INFORMATION
  Report Type: Spontaneous
  Country: US (occurrence: US)
  Receive Date: 20150119
  Receipt Date: 20150119
  Transmission Date: 20150721
  Serious: No
  Sender: FDA-Public Use
  Company Number: US-009507513-1501USA006588

PATIENT
  Age: 56 Year
  Sex: Female

DRUGS (15)
  1. METOPROLOL [Concomitant]
     Active Substance: METOPROLOL
  2. SPIRONOLACTONE. [Concomitant]
     Active Substance: SPIRONOLACTONE
  3. REQUIP [Concomitant]
     Active Substance: ROPINIROLE HYDROCHLORIDE
  4. CEFUROXIME. [Concomitant]
     Active Substance: CEFUROXIME
  5. SPIRIVA [Concomitant]
     Active Substance: TIOTROPIUM BROMIDE MONOHYDRATE
  6. COMBIVENT [Concomitant]
     Active Substance: ALBUTEROL SULFATE\IPRATROPIUM BROMIDE
  7. ESTRADIOL. [Concomitant]
     Active Substance: ESTRADIOL
  8. TRANSDERM SCOP [Concomitant]
     Active Substance: SCOPOLAMINE
  9. PROTONIX [Concomitant]
     Active Substance: PANTOPRAZOLE SODIUM
  10. FLUTICASONE [Concomitant]
     Active Substance: FLUTICASONE\FLUTICASONE PROPIONATE
  11. COZAAR [Suspect]
     Active Substance: LOSARTAN POTASSIUM
     Dosage: 50 MG, BID
     Route: 048
     Dates: start: 20150112
  12. MAGNESIUM (UNSPECIFIED) [Concomitant]
     Active Substance: MAGNESIUM
  13. LASIX [Concomitant]
     Active Substance: FUROSEMIDE
  14. ASPIRIN. [Concomitant]
     Active Substance: ASPIRIN
  15. LIPITOR [Concomitant]
     Active Substance: ATORVASTATIN CALCIUM

REACTIONS (2)
  - Nasal congestion [Not Recovered/Not Resolved]
  - Rhinitis [Not Recovered/Not Resolved]

NARRATIVE: CASE EVENT DATE: 201501
